FAERS Safety Report 4761106-0 (Version None)
Quarter: 2005Q3

REPORT INFORMATION
  Report Type: 
  Country: None (occurrence: None)
  Receive Date: 20050901
  Receipt Date: 20050901
  Transmission Date: 20060218
  Serious: Yes (Other)
  Sender: FDA-Public Use
  Company Number: None

PATIENT
  Sex: Male
  Weight: 122.6 kg

DRUGS (4)
  1. DOXORUBICIN [Suspect]
     Indication: HODGKIN'S DISEASE
     Dosage: SEE IMAGE
     Route: 042
     Dates: start: 20050718
  2. BLEOMYCIN [Suspect]
     Dosage: SEE IMAGE
     Route: 042
     Dates: start: 20050718
  3. VINBLASTINE [Suspect]
     Dosage: SEE IMAGE
     Route: 042
     Dates: start: 20050718
  4. DACARBAZINE [Suspect]
     Dosage: SEE IMAGE
     Route: 042
     Dates: start: 20050718

REACTIONS (5)
  - EJECTION FRACTION DECREASED [None]
  - MYOCARDIAL INFARCTION [None]
  - MYOCARDIAL ISCHAEMIA [None]
  - SCAR [None]
  - VENTRICULAR DYSFUNCTION [None]
